FAERS Safety Report 6814261-2 (Version None)
Quarter: 2010Q3

REPORT INFORMATION
  Report Type: 
  Country: None (occurrence: None)
  Receive Date: 20100702
  Receipt Date: 20100621
  Transmission Date: 20110219
  Serious: Yes (Other)
  Sender: FDA-Public Use
  Company Number: US-ELI_LILLY_AND_COMPANY-US201006005985

PATIENT
  Sex: Male

DRUGS (3)
  1. FORTEO [Suspect]
     Indication: OSTEOPOROSIS
     Dosage: 20 UG, DAILY (1/D)
  2. AGGRENOX [Concomitant]
     Dosage: UNK D/F, 2/D
  3. CLONIDINE [Concomitant]
     Dosage: 0.3 MG, DAILY (1/D)

REACTIONS (1)
  - PROSTATE CANCER [None]
